FAERS Safety Report 9900689 (Version 2)
Quarter: 2014Q2

REPORT INFORMATION
  Report Type: Spontaneous
  Country: AR (occurrence: AR)
  Receive Date: 20140217
  Receipt Date: 20140407
  Transmission Date: 20141212
  Serious: Yes (Other)
  Sender: FDA-Public Use
  Company Number: AR-AMGEN-ARGSP2014011108

PATIENT
  Age: 69 Year
  Sex: Female

DRUGS (7)
  1. ENBREL [Suspect]
     Indication: RHEUMATOID ARTHRITIS
     Dosage: 50 MG, WEEKLY
     Route: 065
     Dates: start: 20130822
  2. ARTRAIT                            /00113801/ [Concomitant]
     Dosage: 25 MG, WEEKLY
  3. FOLIC ACID [Concomitant]
     Dosage: UNK UNK, QWK
  4. MICARDIS [Concomitant]
     Dosage: UNK
  5. OMEPRAZOL                          /00661201/ [Concomitant]
     Dosage: UNK
  6. CALCIUM [Concomitant]
     Dosage: UNK
  7. ALENDRONATO [Concomitant]
     Dosage: UNK

REACTIONS (2)
  - Injury [Recovered/Resolved]
  - Wrist fracture [Recovered/Resolved]
